FAERS Safety Report 4562982-7 (Version None)
Quarter: 2005Q1

REPORT INFORMATION
  Report Type: 
  Country: None (occurrence: None)
  Receive Date: 20050121
  Receipt Date: 20050114
  Transmission Date: 20050727
  Serious: Yes (Hospitalization)
  Sender: FDA-Public Use
  Company Number: 2004115046

PATIENT
  Sex: Male
  Weight: 66 kg

DRUGS (8)
  1. LINEZOLID    (LINEZOLID) [Suspect]
     Indication: ENDOCARDITIS
     Dosage: 600 MG, ORAL
     Route: 048
     Dates: start: 20041101, end: 20041214
  2. PREDNISONE [Concomitant]
  3. DIGITOXIN TAB [Concomitant]
  4. TORSEMIDE [Concomitant]
  5. ESOMEPRAZOLE          (ESOMEPRAZOLE) [Concomitant]
  6. ALLOPURINOL [Concomitant]
  7. PHENPROCOUMON (PHENPROCOUMON) [Concomitant]
  8. FERROGLYCINE SULFATE COMPLEX  (FERROGLYCINE SULFATE COMPLEX) [Concomitant]

REACTIONS (4)
  - EPISTAXIS [None]
  - HAIR GROWTH ABNORMAL [None]
  - RASH PAPULAR [None]
  - THROMBOCYTOPENIA [None]
